FAERS Safety Report 26136700 (Version 1)
Quarter: 2025Q4

REPORT INFORMATION
  Report Type: Spontaneous
  Country: US (occurrence: None)
  Receive Date: 20251209
  Receipt Date: 20251209
  Transmission Date: 20260117
  Serious: Yes (Life-Threatening, Hospitalization)
  Sender: FDA-CTU
  Company Number: None

PATIENT
  Age: 20 Year
  Sex: Male
  Weight: 141.75 kg

DRUGS (2)
  1. ZEPBOUND [Suspect]
     Active Substance: TIRZEPATIDE
     Dosage: OTHER FREQUENCY : WEEKLY;
     Route: 003
  2. ZEPBOUND [Concomitant]
     Active Substance: TIRZEPATIDE
     Dates: start: 20251102, end: 20251102

REACTIONS (3)
  - Back pain [None]
  - Pain in extremity [None]
  - Anaphylactic reaction [None]

NARRATIVE: CASE EVENT DATE: 20251102
